FAERS Safety Report 8338409-6 (Version None)
Quarter: 2012Q1

REPORT INFORMATION
  Report Type: 
  Country: None (occurrence: None)
  Receive Date: 20120329
  Receipt Date: 20090506
  Transmission Date: 20120608
  Serious: Yes (Other)
  Sender: FDA-Public Use
  Company Number: PHEH2009US04472

PATIENT
  Age: 86 Year
  Sex: Female
  Weight: 50.8 kg

DRUGS (1)
  1. EXELON [Suspect]
     Indication: DEMENTIA
     Dosage: 4.6 MG, QD, TRANSDERMAL
     Route: 062
     Dates: start: 20090326, end: 20090408

REACTIONS (12)
  - CARDIAC FAILURE CONGESTIVE [None]
  - WEIGHT INCREASED [None]
  - ANXIETY [None]
  - DELUSIONAL DISORDER, UNSPECIFIED TYPE [None]
  - INSOMNIA [None]
  - REPETITIVE SPEECH [None]
  - AGGRESSION [None]
  - AGITATION [None]
  - RESTLESSNESS [None]
  - ANAEMIA [None]
  - OEDEMA [None]
  - URINARY TRACT INFECTION [None]
